FAERS Safety Report 10060995 (Version 1)
Quarter: 2014Q2

REPORT INFORMATION
  Report Type: Spontaneous
  Country: BE (occurrence: BE)
  Receive Date: 20140405
  Receipt Date: 20140405
  Transmission Date: 20141212
  Serious: Yes (Other)
  Sender: FDA-Public Use
  Company Number: BE-ROCHE-1378545

PATIENT
  Age: 50 Year
  Sex: Male
  Weight: 70 kg

DRUGS (5)
  1. ROACTEMRA [Suspect]
     Indication: RHEUMATOID ARTHRITIS
     Route: 042
     Dates: start: 20090417, end: 20140225
  2. ACICLOVIR [Concomitant]
     Route: 048
  3. METHOTREXATE [Concomitant]
     Indication: RHEUMATOID ARTHRITIS
     Route: 030
     Dates: start: 200712
  4. FOLIC ACID [Concomitant]
     Route: 048
     Dates: start: 200712
  5. DAFALGAN FORTE [Concomitant]
     Route: 048
     Dates: start: 2010

REACTIONS (1)
  - Sarcoidosis [Not Recovered/Not Resolved]
